FAERS Safety Report 9179439 (Version 1)
Quarter: 2012Q4

REPORT INFORMATION
  Report Type: 
  Country: US (occurrence: US)
  Receive Date: 20121029
  Receipt Date: 20121029
  Transmission Date: 20130627
  Serious: No
  Sender: FDA-Public Use
  Company Number: US-AMGEN-USASP2012055778

PATIENT
  Age: 35 Year
  Sex: Female
  Weight: 92.97 kg

DRUGS (7)
  1. ENBREL [Suspect]
     Indication: PRODUCT USED FOR UNKNOWN INDICATION
     Dosage: 50 mg, qwk
     Route: 058
  2. IBUPROFEN [Concomitant]
     Dosage: UNK
  3. NAPROXEN [Concomitant]
     Dosage: UNK
  4. PEPCID                             /00706001/ [Concomitant]
     Dosage: 20 mg, UNK
  5. SOMA [Concomitant]
     Dosage: 250 mg, UNK
  6. VYVANSE [Concomitant]
     Dosage: 20 mg, UNK
  7. PRENATE ELITE [Concomitant]
     Dosage: UNK

REACTIONS (5)
  - Ear infection [Recovered/Resolved]
  - Injection site reaction [Unknown]
  - Injection site erythema [Unknown]
  - Injection site warmth [Unknown]
  - Injection site swelling [Unknown]
